FAERS Safety Report 6176801-9 (Version None)
Quarter: 2009Q2

REPORT INFORMATION
  Report Type: 
  Country: None (occurrence: None)
  Receive Date: 20090501
  Receipt Date: 20090427
  Transmission Date: 20091009
  Serious: Yes (Other)
  Sender: FDA-Public Use
  Company Number: GB-WYE-G03335009

PATIENT
  Sex: Male
  Weight: 79 kg

DRUGS (7)
  1. TEMSIROLIMUS [Suspect]
     Route: 042
     Dates: start: 20081028, end: 20090310
  2. TEMSIROLIMUS [Suspect]
     Dosage: 25MG, FREQUENCY UNKNOWN
     Route: 042
     Dates: start: 20090331
  3. BISOPROLOL FUMARATE [Concomitant]
     Dates: start: 20081007
  4. FLUCLOXACILLIN [Concomitant]
     Dates: start: 20090109, end: 20090116
  5. AUGMENTIN '125' [Concomitant]
     Dates: start: 20090220, end: 20090227
  6. INSULIN [Concomitant]
     Dosage: 'VARIES'
     Route: 058
     Dates: start: 20081205
  7. MEGACE [Concomitant]
     Dosage: 320MG (FREQUENCY UNKNOWN)
     Dates: start: 20090220

REACTIONS (3)
  - BLOOD LACTATE DEHYDROGENASE INCREASED [None]
  - INTERSTITIAL LUNG DISEASE [None]
  - LUNG DISORDER [None]
